FAERS Safety Report 23482121 (Version 2)
Quarter: 2024Q1

REPORT INFORMATION
  Report Type: Spontaneous
  Country: DE (occurrence: None)
  Receive Date: 20240205
  Receipt Date: 20240208
  Transmission Date: 20240410
  Serious: Yes (Hospitalization, Other)
  Sender: FDA-Public Use
  Company Number: 2024A026972

PATIENT
  Sex: Male

DRUGS (1)
  1. DAPAGLIFLOZIN [Suspect]
     Active Substance: DAPAGLIFLOZIN
     Indication: Cardiac failure
     Route: 048

REACTIONS (6)
  - Cardiac failure [Unknown]
  - Tachycardia [Unknown]
  - Atrial fibrillation [Unknown]
  - Ejection fraction abnormal [Unknown]
  - Ketoacidosis [Unknown]
  - Lactic acidosis [Unknown]
